FAERS Safety Report 17173803 (Version 1)
Quarter: 2019Q4

REPORT INFORMATION
  Report Type: Spontaneous
  Country: US (occurrence: US)
  Receive Date: 20191218
  Receipt Date: 20191218
  Transmission Date: 20200122
  Serious: Yes (Hospitalization)
  Sender: FDA-Public Use
  Company Number: None

PATIENT
  Age: 14 Year
  Sex: Male

DRUGS (7)
  1. PREVACID [Concomitant]
     Active Substance: LANSOPRAZOLE
  2. TOBI [Concomitant]
     Active Substance: TOBRAMYCIN
  3. PULMOZYME [Suspect]
     Active Substance: DORNASE ALFA
     Route: 055
  4. NASONEX [Concomitant]
     Active Substance: MOMETASONE FUROATE
  5. ALBUTEROL. [Concomitant]
     Active Substance: ALBUTEROL
  6. BACTRIM DS [Concomitant]
     Active Substance: SULFAMETHOXAZOLE\TRIMETHOPRIM
  7. PULMOZYME [Concomitant]
     Active Substance: DORNASE ALFA

REACTIONS (1)
  - Infection [None]
